FAERS Safety Report 7400433-5 (Version None)
Quarter: 2011Q1

REPORT INFORMATION
  Report Type: 
  Country: None (occurrence: None)
  Receive Date: 20110329
  Receipt Date: 20110314
  Transmission Date: 20110831
  Serious: Yes (Hospitalization)
  Sender: FDA-Public Use
  Company Number: CIO11005532

PATIENT
  Age: 68 Year
  Sex: Male

DRUGS (2)
  1. NYQUIL OR NYQUIL D COLF/FLU RELIEF ALCOHOL 10% ORIGINAL FLAVOR (ETHANO [Suspect]
     Dosage: 180 ML; 1 ONLY, ORAL
     Route: 048
  2. MAPROTILINE HCL (MAPROTILINE HYDROCHLORIDE) [Suspect]
     Indication: SUICIDE ATTEMPT
     Dosage: 4500 MG, 1 ONLY, ORAL
     Route: 048

REACTIONS (31)
  - PNEUMONIA [None]
  - ELECTROCARDIOGRAM QRS COMPLEX PROLONGED [None]
  - GRAND MAL CONVULSION [None]
  - HAEMATEMESIS [None]
  - HAEMATURIA [None]
  - SUICIDE ATTEMPT [None]
  - INTENTIONAL DRUG MISUSE [None]
  - BLOOD ETHANOL INCREASED [None]
  - HYPOTENSION [None]
  - VENTRICULAR EXTRASYSTOLES [None]
  - ANALGESIC DRUG LEVEL INCREASED [None]
  - INCORRECT DOSE ADMINISTERED [None]
  - ELECTROCARDIOGRAM PR PROLONGATION [None]
  - URINARY RETENTION [None]
  - GLYCOSURIA [None]
  - ELECTROCARDIOGRAM QT INTERVAL ABNORMAL [None]
  - UNRESPONSIVE TO STIMULI [None]
  - BLOOD PRESSURE DECREASED [None]
  - BLOOD BILIRUBIN INCREASED [None]
  - MYOCLONIC EPILEPSY [None]
  - BLOOD PRESSURE SYSTOLIC DECREASED [None]
  - AREFLEXIA [None]
  - ELECTROCARDIOGRAM T WAVE AMPLITUDE DECREASED [None]
  - ASPARTATE AMINOTRANSFERASE INCREASED [None]
  - BLOOD LACTATE DEHYDROGENASE INCREASED [None]
  - ALANINE AMINOTRANSFERASE INCREASED [None]
  - ELECTROENCEPHALOGRAM ABNORMAL [None]
  - COMA [None]
  - ATRIOVENTRICULAR BLOCK FIRST DEGREE [None]
  - CONDUCTION DISORDER [None]
  - GASTRIC HAEMORRHAGE [None]
